FAERS Safety Report 6440789-3 (Version None)
Quarter: 2009Q4

REPORT INFORMATION
  Report Type: 
  Country: None (occurrence: None)
  Receive Date: 20091116
  Receipt Date: 20091105
  Transmission Date: 20100525
  Serious: No
  Sender: FDA-Public Use
  Company Number: ES-JNJFOC-20091102931

PATIENT
  Age: 75 Year
  Sex: Female

DRUGS (4)
  1. DURAGESIC-100 [Suspect]
     Route: 062
  2. DURAGESIC-100 [Suspect]
     Dosage: 25 UG/HR PLUS HALF OF 12 UG/HR
     Route: 062
  3. DURAGESIC-100 [Suspect]
     Indication: OSTEOPOROSIS
     Route: 062
  4. UNKNOWN MEDICATION [Concomitant]
     Indication: HYPERTENSION

REACTIONS (5)
  - DRUG PRESCRIBING ERROR [None]
  - MALAISE [None]
  - PALPITATIONS [None]
  - TREMOR [None]
  - WRONG TECHNIQUE IN DRUG USAGE PROCESS [None]
